FAERS Safety Report 4895962-2 (Version None)
Quarter: 2005Q4

REPORT INFORMATION
  Report Type: 
  Country: None (occurrence: None)
  Receive Date: 20051220
  Receipt Date: 20050412
  Transmission Date: 20060501
  Serious: Yes (Hospitalization, Other)
  Sender: FDA-Public Use
  Company Number: US124417

PATIENT
  Age: 41 Year
  Sex: Female

DRUGS (2)
  1. ENBREL [Suspect]
     Indication: PSORIASIS
     Dosage: 50 MG, 1 IN 1 WEEKS, SC
     Route: 058
     Dates: start: 20040401, end: 20041015
  2. CELEXA [Concomitant]

REACTIONS (1)
  - BREAST CANCER [None]
